FAERS Safety Report 9696846 (Version 2)
Quarter: 2015Q3

REPORT INFORMATION
  Report Type: Spontaneous
  Country: US (occurrence: US)
  Receive Date: 20131119
  Receipt Date: 20150803
  Transmission Date: 20151125
  Serious: No
  Sender: FDA-Public Use
  Company Number: US-GILEAD-2007-0013552

PATIENT
  Age: 78 Year
  Sex: Male
  Weight: 81.65 kg

DRUGS (9)
  1. AVAPRO [Concomitant]
     Active Substance: IRBESARTAN
     Route: 048
  2. PROSCAR [Concomitant]
     Active Substance: FINASTERIDE
     Route: 048
  3. POTASSIUM CHLORIDE. [Concomitant]
     Active Substance: POTASSIUM CHLORIDE
     Route: 048
  4. COUMADIN [Concomitant]
     Active Substance: WARFARIN SODIUM
     Route: 048
  5. LETAIRIS [Suspect]
     Active Substance: AMBRISENTAN
     Indication: PULMONARY ARTERIAL HYPERTENSION
     Route: 048
  6. COUMADIN [Concomitant]
     Active Substance: WARFARIN SODIUM
     Route: 048
  7. DIGOXIN. [Concomitant]
     Active Substance: DIGOXIN
     Route: 048
  8. LASIX [Concomitant]
     Active Substance: FUROSEMIDE
     Route: 048
  9. LIPITOR [Concomitant]
     Active Substance: ATORVASTATIN CALCIUM
     Route: 048

REACTIONS (2)
  - Oedema [Unknown]
  - Weight increased [Unknown]
